FAERS Safety Report 20517705 (Version 1)
Quarter: 2022Q1

REPORT INFORMATION
  Report Type: Spontaneous
  Country: US (occurrence: None)
  Receive Date: 20220224
  Receipt Date: 20220224
  Transmission Date: 20220424
  Serious: Yes (Death)
  Sender: FDA-Public Use
  Company Number: None

PATIENT
  Age: 73 Year
  Sex: Male

DRUGS (1)
  1. RAYALDEE [Suspect]
     Active Substance: CALCIFEDIOL
     Indication: Hyperparathyroidism
     Dosage: FREQUENCY : DAILY;?
     Route: 048
     Dates: start: 20210510, end: 20220217

REACTIONS (2)
  - Sepsis [None]
  - Renal failure [None]

NARRATIVE: CASE EVENT DATE: 20220222
